FAERS Safety Report 9056092 (Version 1)
Quarter: 2013Q1

REPORT INFORMATION
  Report Type: Spontaneous
  Country: US (occurrence: US)
  Receive Date: 20130205
  Receipt Date: 20130205
  Transmission Date: 20140127
  Serious: Yes (Other)
  Sender: FDA-Public Use
  Company Number: US-SANOFI-AVENTIS-2013SA008415

PATIENT
  Sex: Female

DRUGS (2)
  1. LANTUS [Suspect]
     Route: 051
  2. METFORMIN [Suspect]

REACTIONS (1)
  - Eye haemorrhage [Not Recovered/Not Resolved]
